FAERS Safety Report 25458096 (Version 1)
Quarter: 2025Q2

REPORT INFORMATION
  Report Type: Spontaneous
  Country: US (occurrence: US)
  Receive Date: 20250620
  Receipt Date: 20250620
  Transmission Date: 20250717
  Serious: Yes (Life-Threatening, Hospitalization, Other)
  Sender: GLAXOSMITHKLINE
  Company Number: US-GLAXOSMITHKLINE INC-US2025GSK076264

PATIENT
  Age: 28 Year
  Sex: Male

DRUGS (1)
  1. MEPOLIZUMAB [Suspect]
     Active Substance: MEPOLIZUMAB
     Indication: Eosinophilic granulomatosis with polyangiitis

REACTIONS (5)
  - Asthmatic crisis [Recovering/Resolving]
  - Treatment noncompliance [Unknown]
  - Acute respiratory failure [Recovering/Resolving]
  - Bronchopulmonary aspergillosis [Recovering/Resolving]
  - Condition aggravated [Recovering/Resolving]
